FAERS Safety Report 18212723 (Version 1)
Quarter: 2020Q3

REPORT INFORMATION
  Report Type: Spontaneous
  Country: US (occurrence: US)
  Receive Date: 20200831
  Receipt Date: 20200831
  Transmission Date: 20201103
  Serious: Yes (Other)
  Sender: FDA-Public Use
  Company Number: US-BAYER-2020-173941

PATIENT
  Age: 42 Year
  Sex: Female
  Weight: 90.81 kg

DRUGS (1)
  1. MIRENA [Suspect]
     Active Substance: LEVONORGESTREL
     Dosage: 20 ?G PER DAY, CONTINUOUSLY
     Route: 015

REACTIONS (6)
  - Vaginal odour [None]
  - Device issue [None]
  - Abdominal pain [None]
  - Vulvovaginal mycotic infection [None]
  - Genital haemorrhage [None]
  - Procedural pain [None]
